FAERS Safety Report 7656174-2 (Version None)
Quarter: 2011Q3

REPORT INFORMATION
  Report Type: 
  Country: None (occurrence: None)
  Receive Date: 20110804
  Receipt Date: 20110728
  Transmission Date: 20111222
  Serious: Yes (Other)
  Sender: FDA-Public Use
  Company Number: GB-PFIZER INC-2011172044

PATIENT
  Sex: Female

DRUGS (1)
  1. PREMARIN [Suspect]
     Indication: HOT FLUSH
     Dosage: 0.625 UNK, UNK
     Dates: start: 19790101, end: 20110701

REACTIONS (4)
  - DIARRHOEA [None]
  - COLITIS [None]
  - MULTIPLE ALLERGIES [None]
  - HEART RATE IRREGULAR [None]
